FAERS Safety Report 7987046-1 (Version None)
Quarter: 2011Q4

REPORT INFORMATION
  Report Type: 
  Country: None (occurrence: None)
  Receive Date: 20111216
  Receipt Date: 20110922
  Transmission Date: 20120403
  Serious: Yes (Other)
  Sender: FDA-Public Use
  Company Number: US-BRISTOL-MYERS SQUIBB COMPANY-16077521

PATIENT
  Age: 22 Year
  Sex: Male

DRUGS (2)
  1. VISTARIL [Suspect]
     Route: 048
     Dates: start: 20110829
  2. ABILIFY [Suspect]
     Indication: BIPOLAR DISORDER
     Route: 048
     Dates: start: 20110829

REACTIONS (1)
  - SWOLLEN TONGUE [None]
